FAERS Safety Report 25874810 (Version 1)
Quarter: 2025Q4

REPORT INFORMATION
  Report Type: Report from Study
  Country: US (occurrence: US)
  Receive Date: 20251002
  Receipt Date: 20251002
  Transmission Date: 20260119
  Serious: Yes (Other)
  Sender: ALEXION PHARMACEUTICALS
  Company Number: US-AstraZeneca-CH-00961415A

PATIENT
  Sex: Female
  Weight: 75.999 kg

DRUGS (7)
  1. CAPIVASERTIB [Suspect]
     Active Substance: CAPIVASERTIB
     Indication: Breast cancer female
     Dosage: : 320 MG TWICE DAILY FOR 4 DAYS ON, THEN 3 DAYS OFF.
     Dates: start: 20250401
  2. ATORVASTATIN [Concomitant]
     Active Substance: ATORVASTATIN
     Route: 065
  3. FULVESTRANT [Concomitant]
     Active Substance: FULVESTRANT
     Route: 065
  4. TELMISARTAN [Concomitant]
     Active Substance: TELMISARTAN
     Route: 065
  5. TRULICITY [Concomitant]
     Active Substance: DULAGLUTIDE
     Route: 065
  6. VITAMIN B12 [Concomitant]
     Active Substance: CYANOCOBALAMIN
     Route: 065
  7. VITAMIN D3 [Concomitant]
     Active Substance: CHOLECALCIFEROL
     Route: 065

REACTIONS (5)
  - Malignant neoplasm progression [Unknown]
  - Rash [Unknown]
  - Diarrhoea [Unknown]
  - Diabetes mellitus [Unknown]
  - Oral pain [Unknown]
